FAERS Safety Report 4768434-3 (Version None)
Quarter: 2005Q3

REPORT INFORMATION
  Report Type: 
  Country: None (occurrence: None)
  Receive Date: 20050914
  Receipt Date: 20050816
  Transmission Date: 20060218
  Serious: Yes (Hospitalization)
  Sender: FDA-Public Use
  Company Number: CR-ROCHE-417235

PATIENT
  Age: 18 Year
  Sex: Male
  Weight: 90.9 kg

DRUGS (1)
  1. XENICAL [Suspect]
     Indication: WEIGHT CONTROL
     Route: 048
     Dates: start: 20050715, end: 20050815

REACTIONS (1)
  - COLITIS [None]
